FAERS Safety Report 6289404-2 (Version None)
Quarter: 2009Q3

REPORT INFORMATION
  Report Type: 
  Country: None (occurrence: None)
  Receive Date: 20090730
  Receipt Date: 20090723
  Transmission Date: 20100115
  Serious: Yes (Hospitalization)
  Sender: FDA-Public Use
  Company Number: CA-ELI_LILLY_AND_COMPANY-CA200906004366

PATIENT
  Age: 62 Year

DRUGS (1)
  1. HUMALOG [Suspect]
     Dosage: UNK, UNK
     Route: 058

REACTIONS (3)
  - DIABETIC KETOACIDOSIS [None]
  - INTENTIONAL DRUG MISUSE [None]
  - POOR QUALITY DRUG ADMINISTERED [None]
